FAERS Safety Report 23937817 (Version 2)
Quarter: 2024Q2

REPORT INFORMATION
  Report Type: Spontaneous
  Country: CH (occurrence: CH)
  Receive Date: 20240604
  Receipt Date: 20240606
  Transmission Date: 20240716
  Serious: Yes (Hospitalization)
  Sender: FDA-Public Use
  Company Number: CH-MYLANLABS-2024M1050355

PATIENT
  Age: 36 Year
  Sex: Male

DRUGS (7)
  1. CLOZAPINE [Suspect]
     Active Substance: CLOZAPINE
     Indication: Schizophrenia
     Dosage: 200 MILLIGRAM, QD,PILL
     Route: 065
     Dates: start: 2016
  2. CLOZAPINE [Suspect]
     Active Substance: CLOZAPINE
     Dosage: UNK, INITIALLY STOPPED, LATER RESTARTED AND INCREASED IN DOSE
     Route: 065
  3. ARIPIPRAZOLE [Suspect]
     Active Substance: ARIPIPRAZOLE
     Indication: Schizophrenia
     Dosage: UNK
     Route: 065
     Dates: start: 202008
  4. FLUVOXAMINE [Interacting]
     Active Substance: FLUVOXAMINE
     Indication: Schizophrenia
     Dosage: UNK
     Route: 065
     Dates: start: 202008
  5. OLANZAPINE [Concomitant]
     Active Substance: OLANZAPINE
     Indication: Schizophrenia
     Dosage: UNK
     Route: 065
  6. PROMAZINE [Concomitant]
     Active Substance: PROMAZINE
     Indication: Schizophrenia
     Dosage: UNK
     Route: 065
  7. RISPERIDONE [Concomitant]
     Active Substance: RISPERIDONE
     Indication: Schizophrenia
     Dosage: UNK
     Route: 065

REACTIONS (7)
  - Blood creatine phosphokinase increased [Recovered/Resolved]
  - Liver disorder [Unknown]
  - Hyperglycaemia [Unknown]
  - Dyslipidaemia [Unknown]
  - Labelled drug-drug interaction medication error [Unknown]
  - Drug ineffective [Unknown]
  - Product dose omission in error [Unknown]

NARRATIVE: CASE EVENT DATE: 20200801
